APPROVED DRUG PRODUCT: PEMETREXED DISODIUM
Active Ingredient: PEMETREXED DISODIUM
Strength: EQ 850MG BASE/34ML (EQ 25MG BASE/ML)
Dosage Form/Route: SOLUTION;INTRAVENOUS
Application: N214408 | Product #003
Applicant: ACCORD HEALTHCARE INC
Approved: Jul 19, 2022 | RLD: Yes | RS: No | Type: DISCN